FAERS Safety Report 13284940 (Version 1)
Quarter: 2017Q1

REPORT INFORMATION
  Report Type: Spontaneous
  Country: US (occurrence: US)
  Receive Date: 20170301
  Receipt Date: 20170301
  Transmission Date: 20170428
  Serious: Yes (Disabling)
  Sender: FDA-Public Use
  Company Number: None

PATIENT
  Age: 62 Year
  Sex: Female
  Weight: 72 kg

DRUGS (6)
  1. LOSORTAN POTASSIUM [Suspect]
     Active Substance: LOSARTAN POTASSIUM
     Indication: HYPERTENSION
     Dosage: QUANTITY:90 TABLET(S);OTHER FREQUENCY:1/2 BID;?
     Route: 048
     Dates: start: 20170224
  2. VITAMIN D3 [Concomitant]
     Active Substance: CHOLECALCIFEROL
  3. NATURE MADE MULTIVITAMIN WITH IRON [Concomitant]
  4. LOSORTAN POTASSIUM [Suspect]
     Active Substance: LOSARTAN POTASSIUM
     Indication: CAROTIDYNIA
     Dosage: QUANTITY:90 TABLET(S);OTHER FREQUENCY:1/2 BID;?
     Route: 048
     Dates: start: 20170224
  5. POTASSIUM [Concomitant]
     Active Substance: POTASSIUM
  6. LOSARTAN. [Concomitant]
     Active Substance: LOSARTAN

REACTIONS (2)
  - Urticaria [None]
  - Product counterfeit [None]

NARRATIVE: CASE EVENT DATE: 20170224
